FAERS Safety Report 17839145 (Version 2)
Quarter: 2020Q2

REPORT INFORMATION
  Report Type: Spontaneous
  Country: FR (occurrence: FR)
  Receive Date: 20200529
  Receipt Date: 20200616
  Transmission Date: 20200714
  Serious: Yes (Hospitalization, Other)
  Sender: FDA-Public Use
  Company Number: FR-BIOGEN-2020BI00878092

PATIENT
  Age: 16 Year
  Sex: Female

DRUGS (15)
  1. AVONEX [Suspect]
     Active Substance: INTERFERON BETA-1A
     Indication: MULTIPLE SCLEROSIS
     Route: 065
  2. AVONEX [Suspect]
     Active Substance: INTERFERON BETA-1A
  3. AVONEX [Suspect]
     Active Substance: INTERFERON BETA-1A
  4. AVONEX [Suspect]
     Active Substance: INTERFERON BETA-1A
  5. AVONEX [Suspect]
     Active Substance: INTERFERON BETA-1A
  6. AVONEX [Suspect]
     Active Substance: INTERFERON BETA-1A
  7. AVONEX [Suspect]
     Active Substance: INTERFERON BETA-1A
  8. AVONEX [Suspect]
     Active Substance: INTERFERON BETA-1A
  9. AVONEX [Suspect]
     Active Substance: INTERFERON BETA-1A
  10. AVONEX [Suspect]
     Active Substance: INTERFERON BETA-1A
  11. AVONEX [Suspect]
     Active Substance: INTERFERON BETA-1A
  12. AVONEX [Suspect]
     Active Substance: INTERFERON BETA-1A
  13. VAXIGRIP [Suspect]
     Active Substance: INFLUENZA VIRUS VACCINE
     Indication: PROPHYLAXIS
     Dates: start: 20171016
  14. AVONEX [Suspect]
     Active Substance: INTERFERON BETA-1A
  15. ENGERIX-B [Suspect]
     Active Substance: HEPATITIS B VIRUS SUBTYPE ADW2 HBSAG SURFACE PROTEIN ANTIGEN
     Indication: PROPHYLAXIS
     Route: 065
     Dates: start: 19951023

REACTIONS (28)
  - Multiple sclerosis [Unknown]
  - Vitreous floaters [Unknown]
  - Eye pain [Unknown]
  - General physical health deterioration [Unknown]
  - Dizziness [Unknown]
  - IIIrd nerve disorder [Unknown]
  - Visual impairment [Unknown]
  - Facial paralysis [Unknown]
  - Depression [Unknown]
  - Balance disorder [Unknown]
  - Gait disturbance [Unknown]
  - Diplopia [Unknown]
  - Ocular discomfort [Unknown]
  - Dysstasia [Unknown]
  - Paraesthesia [Unknown]
  - Pyrexia [Unknown]
  - Chills [Unknown]
  - Vision blurred [Unknown]
  - Nervous system disorder [Unknown]
  - Impaired driving ability [Unknown]
  - Headache [Unknown]
  - Fatigue [Unknown]
  - Pain in extremity [Unknown]
  - Limb discomfort [Unknown]
  - Asthenia [Unknown]
  - Vertigo [Unknown]
  - Loss of personal independence in daily activities [Unknown]
  - Optic neuropathy [Unknown]

NARRATIVE: CASE EVENT DATE: 199812
